APPROVED DRUG PRODUCT: NIZATIDINE
Active Ingredient: NIZATIDINE
Strength: 300MG
Dosage Form/Route: CAPSULE;ORAL
Application: A077314 | Product #002 | TE Code: AB
Applicant: DR REDDYS LABORATORIES LTD
Approved: Sep 15, 2005 | RLD: No | RS: No | Type: RX